FAERS Safety Report 8250950-3 (Version None)
Quarter: 2012Q2

REPORT INFORMATION
  Report Type: 
  Country: None (occurrence: None)
  Receive Date: 20120402
  Receipt Date: 20120327
  Transmission Date: 20120825
  Serious: Yes (Death)
  Sender: FDA-Public Use
  Company Number: UY-ASTRAZENECA-2012SE20526

PATIENT
  Age: 74 Year
  Sex: Female

DRUGS (4)
  1. NPH INSULIN [Concomitant]
  2. MORPHINE [Concomitant]
  3. LIDOCAINE HCL [Suspect]
     Route: 065
  4. ATROPINE [Concomitant]

REACTIONS (3)
  - EUTHANASIA [None]
  - CARDIAC ARREST [None]
  - PULMONARY EMBOLISM [None]
